FAERS Safety Report 9229477 (Version 1)
Quarter: 2013Q2

REPORT INFORMATION
  Report Type: Spontaneous
  Country: US (occurrence: US)
  Receive Date: 20130412
  Receipt Date: 20130412
  Transmission Date: 20140414
  Serious: Yes (Death, Hospitalization)
  Sender: FDA-Public Use
  Company Number: US-ASTELLAS-2013US002730

PATIENT
  Age: 76 Year
  Sex: Male

DRUGS (1)
  1. PROGRAF [Suspect]
     Indication: RENAL TRANSPLANT
     Dosage: 3 MG, (1 MG IN AM, 2 MG IN PM)
     Route: 048
     Dates: start: 20021101, end: 20130301

REACTIONS (1)
  - Infection [Fatal]
